FAERS Safety Report 6077352-2 (Version None)
Quarter: 2009Q1

REPORT INFORMATION
  Report Type: 
  Country: None (occurrence: None)
  Receive Date: 20090213
  Receipt Date: 20090204
  Transmission Date: 20090719
  Serious: Yes (Hospitalization)
  Sender: FDA-Public Use
  Company Number: B0559011A

PATIENT
  Age: 43 Year
  Sex: Female

DRUGS (6)
  1. PAROXETINE HCL [Suspect]
     Route: 048
  2. SINTROM [Suspect]
     Route: 048
     Dates: start: 20080810, end: 20080821
  3. REXER [Concomitant]
     Route: 048
  4. LORAZEPAM [Concomitant]
     Route: 048
  5. OMEPRAZOLE [Concomitant]
     Route: 048
  6. PARACETAMOL [Concomitant]
     Route: 048

REACTIONS (3)
  - DRUG INTERACTION [None]
  - LARGE INTESTINE PERFORATION [None]
  - PELVIC HAEMATOMA [None]
